FAERS Safety Report 9351305 (Version 2)
Quarter: 2015Q1

REPORT INFORMATION
  Report Type: Spontaneous
  Country: DE (occurrence: DE)
  Receive Date: 20130617
  Receipt Date: 20150113
  Transmission Date: 20150721
  Serious: Yes (Hospitalization)
  Sender: FDA-Public Use
  Company Number: PHHY2013DE059494

PATIENT
  Age: 60 Year
  Sex: Male

DRUGS (5)
  1. CEFUROXIME. [Concomitant]
     Active Substance: CEFUROXIME
     Indication: ANAESTHESIA
     Dosage: 1500 MG, UNK
     Route: 041
  2. SUFENTANIL [Concomitant]
     Active Substance: SUFENTANIL
     Indication: ANAESTHESIA
     Dosage: 50 UG, UNK
     Route: 065
  3. RAMIPRIL. [Suspect]
     Active Substance: RAMIPRIL
     Indication: HYPERTENSION
     Route: 065
  4. ETOMIDATE. [Concomitant]
     Active Substance: ETOMIDATE
     Indication: ANAESTHESIA
     Dosage: 20 MG, UNK
     Route: 065
  5. ATRACURIUM [Concomitant]
     Active Substance: ATRACURIUM
     Indication: ANAESTHESIA
     Dosage: 50 MG, UNK
     Route: 065

REACTIONS (15)
  - Multi-organ failure [Recovered/Resolved]
  - Erythema [Unknown]
  - Disseminated intravascular coagulation [Recovered/Resolved]
  - Shock [Recovered/Resolved]
  - Capillary leak syndrome [Recovered/Resolved]
  - Hypotension [Unknown]
  - Haemorrhage [Recovered/Resolved]
  - Fibrin D dimer increased [Recovered/Resolved]
  - Angioedema [Unknown]
  - Hyperfibrinolysis [Recovered/Resolved]
  - Anuria [Recovered/Resolved]
  - Rubber sensitivity [Unknown]
  - Lactic acidosis [Recovered/Resolved]
  - Blood lactate dehydrogenase decreased [Recovered/Resolved]
  - Cardiovascular disorder [Recovered/Resolved]
